FAERS Safety Report 4686562-8 (Version None)
Quarter: 2005Q2

REPORT INFORMATION
  Report Type: 
  Country: None (occurrence: None)
  Receive Date: 20050607
  Receipt Date: 20050523
  Transmission Date: 20051028
  Serious: Yes (Hospitalization, Other)
  Sender: FDA-Public Use
  Company Number: 2005078548

PATIENT
  Sex: Female
  Weight: 71.6683 kg

DRUGS (7)
  1. CELEBREX [Suspect]
     Indication: RHEUMATOID ARTHRITIS
     Dosage: 200 MG (100 MG, 2 IN 1 D), ORAL
     Route: 048
  2. CHEMOTHERAPY NOS (CHEMOTHERAPY NOS) [Suspect]
     Indication: BREAST CANCER FEMALE
  3. ALL OTHER THERAPEUTIC PRODUCTS (ALL OTHER THERAPEUTIC PRODUCTS) [Suspect]
     Indication: RHEUMATOID ARTHRITIS
  4. XANAX [Concomitant]
  5. CITALOPRAM (CITALOPRAM) [Concomitant]
  6. TRIAMTERENE AND HYDROCHLOROTHIAZIDE, TRIAMTERENE) [Concomitant]
  7. FUROSEMIDE [Concomitant]

REACTIONS (12)
  - BLOOD PRESSURE INCREASED [None]
  - BREAST CANCER [None]
  - BREAST MASS [None]
  - CARDIAC ARREST [None]
  - CARDIAC VENTRICULAR DISORDER [None]
  - DRUG INEFFECTIVE [None]
  - DYSPNOEA [None]
  - INSOMNIA [None]
  - LYMPHOMA [None]
  - PANIC ATTACK [None]
  - PULMONARY OEDEMA [None]
  - STOMACH DISCOMFORT [None]
